FAERS Safety Report 5464303-4 (Version None)
Quarter: 2007Q3

REPORT INFORMATION
  Report Type: 
  Country: None (occurrence: None)
  Receive Date: 20070921
  Receipt Date: 20070917
  Transmission Date: 20080115
  Serious: Yes (Hospitalization)
  Sender: FDA-Public Use
  Company Number: B0487830A

PATIENT
  Age: 55 Year
  Sex: Female

DRUGS (5)
  1. LAMICTAL [Suspect]
     Indication: DEPRESSION
     Route: 048
     Dates: start: 20070612
  2. DOGMATIL [Concomitant]
     Indication: DIZZINESS
     Dosage: 5ML PER DAY
     Route: 048
     Dates: start: 20070401, end: 20070701
  3. VENLAFAXINE HCL [Concomitant]
     Indication: DEPRESSION
     Dosage: 150MG PER DAY
     Route: 048
     Dates: start: 20070612, end: 20070701
  4. ORFIDAL [Concomitant]
     Indication: ANXIETY
     Dosage: 1MG PER DAY
     Route: 048
     Dates: start: 20070612, end: 20070702
  5. TRAZODONE HCL [Concomitant]
     Indication: DEPRESSION
     Dosage: 25MG PER DAY
     Dates: start: 20070401

REACTIONS (4)
  - HEPATOTOXICITY [None]
  - MUCOSAL INFLAMMATION [None]
  - PANCYTOPENIA [None]
  - RASH [None]
